FAERS Safety Report 6565935-2 (Version None)
Quarter: 2010Q1

REPORT INFORMATION
  Report Type: 
  Country: None (occurrence: None)
  Receive Date: 20100129
  Receipt Date: 20100129
  Transmission Date: 20100710
  Serious: No
  Sender: FDA-Public Use
  Company Number: None

PATIENT
  Sex: Male
  Weight: 127.4608 kg

DRUGS (1)
  1. KEPPRA (GENERIC) 1000 MG [Suspect]
     Indication: COMPLEX PARTIAL SEIZURES
     Dosage: 2000 MG BID PO
     Route: 048

REACTIONS (2)
  - CONVULSION [None]
  - PRODUCT SUBSTITUTION ISSUE [None]
